FAERS Safety Report 10982898 (Version 6)
Quarter: 2017Q3

REPORT INFORMATION
  Report Type: Report from Study
  Country: BR (occurrence: BR)
  Receive Date: 20150403
  Receipt Date: 20170824
  Transmission Date: 20171127
  Serious: Yes (Hospitalization, Other)
  Sender: FDA-Public Use
  Company Number: BR-ROCHE-1431031

PATIENT
  Age: 80 Year
  Sex: Female
  Weight: 47 kg

DRUGS (16)
  1. MABTHERA [Suspect]
     Active Substance: RITUXIMAB
     Indication: RHEUMATOID ARTHRITIS
     Route: 042
     Dates: start: 20170113
  2. TRAMAL [Concomitant]
     Active Substance: TRAMADOL
  3. DIPYRONE [Concomitant]
     Active Substance: DIPYRONE
     Indication: PAIN
     Dosage: DID NOT TAKE ON DAILY BASIS
     Route: 065
  4. ENDOFOLIN [Concomitant]
     Active Substance: FOLIC ACID
     Indication: ANAEMIA
  5. CALCORT [Concomitant]
     Active Substance: DEFLAZACORT
     Indication: PAIN
     Dosage: DID NOT TAKE ON DAILY BASIS
     Route: 065
  6. PECTAL [Concomitant]
     Route: 065
  7. NOVALGINA [Concomitant]
     Active Substance: METAMIZOLE SODIUM
     Indication: PAIN
  8. BUSCOPAN [Concomitant]
     Active Substance: BUTYLSCOPOLAMINE BROMIDE
     Indication: ABDOMINAL PAIN
     Dosage: DID NOT TAKE ON DAILY BASIS
     Route: 065
  9. NOVALGINA [Concomitant]
     Active Substance: METAMIZOLE SODIUM
     Indication: HYPERTENSION
  10. LOSARTAN. [Concomitant]
     Active Substance: LOSARTAN
     Indication: HYPERTENSION
     Route: 065
  11. FLORATIL [Concomitant]
     Indication: DIARRHOEA
  12. TECTA [Concomitant]
     Active Substance: PANTOPRAZOLE MAGNESIUM
     Route: 065
  13. DOMPERIDONE [Concomitant]
     Active Substance: DOMPERIDONE
     Route: 065
  14. ACTEMRA [Suspect]
     Active Substance: TOCILIZUMAB
     Indication: RHEUMATOID ARTHRITIS
     Route: 042
     Dates: start: 20140516
  15. PANTOPRAZOLE [Concomitant]
     Active Substance: PANTOPRAZOLE
     Indication: GASTRIC DISORDER
  16. PANTOZOL (BELGIUM) [Concomitant]

REACTIONS (25)
  - Syncope [Unknown]
  - Pain [Not Recovered/Not Resolved]
  - Joint swelling [Unknown]
  - Blood cholesterol abnormal [Unknown]
  - Blood sodium decreased [Unknown]
  - Rhinitis allergic [Unknown]
  - Memory impairment [Not Recovered/Not Resolved]
  - Peripheral swelling [Unknown]
  - Ill-defined disorder [Not Recovered/Not Resolved]
  - Gait disturbance [Not Recovered/Not Resolved]
  - Fall [Unknown]
  - Arthralgia [Not Recovered/Not Resolved]
  - Stomatitis necrotising [Not Recovered/Not Resolved]
  - Weight decreased [Not Recovered/Not Resolved]
  - Gastrooesophageal reflux disease [Not Recovered/Not Resolved]
  - Rhinitis allergic [Recovering/Resolving]
  - Peripheral swelling [Not Recovered/Not Resolved]
  - Vomiting [Not Recovered/Not Resolved]
  - Nausea [Not Recovered/Not Resolved]
  - Rheumatoid arthritis [Not Recovered/Not Resolved]
  - Joint swelling [Not Recovered/Not Resolved]
  - Diarrhoea [Not Recovered/Not Resolved]
  - Pelvic fracture [Not Recovered/Not Resolved]
  - Bronchitis [Recovering/Resolving]
  - Anaemia [Not Recovered/Not Resolved]

NARRATIVE: CASE EVENT DATE: 20140615
